FAERS Safety Report 21135383 (Version 1)
Quarter: 2022Q3

REPORT INFORMATION
  Report Type: Spontaneous
  Country: FR (occurrence: FR)
  Receive Date: 20220727
  Receipt Date: 20220727
  Transmission Date: 20221027
  Serious: Yes (Other)
  Sender: FDA-Public Use
  Company Number: FR-AFSSAPS-PP20220569

PATIENT
  Age: 80 Year
  Sex: Male
  Weight: 65 kg

DRUGS (1)
  1. LEVOFLOXACIN [Suspect]
     Active Substance: LEVOFLOXACIN
     Indication: Infection
     Dosage: UNK
     Route: 048
     Dates: start: 20220312

REACTIONS (1)
  - Cutaneous vasculitis [Not Recovered/Not Resolved]

NARRATIVE: CASE EVENT DATE: 20220401
